FAERS Safety Report 18416763 (Version 3)
Quarter: 2022Q4

REPORT INFORMATION
  Report Type: Spontaneous
  Country: US (occurrence: US)
  Receive Date: 20201022
  Receipt Date: 20221202
  Transmission Date: 20230113
  Serious: No
  Sender: FDA-Public Use
  Company Number: US-PFIZER INC-2020409538

PATIENT
  Age: 72 Year
  Sex: Female
  Weight: 74.39 kg

DRUGS (2)
  1. IBRANCE [Suspect]
     Active Substance: PALBOCICLIB
     Indication: Breast cancer female
     Dosage: 100MG, ONCE EVERY NIGHT FOR 21 DAYS AND THEN OFF ONE WEEK
  2. IBRANCE [Suspect]
     Active Substance: PALBOCICLIB
     Indication: Lung neoplasm malignant

REACTIONS (12)
  - Confusional state [Unknown]
  - Hyperhidrosis [Unknown]
  - Pyrexia [Unknown]
  - Middle insomnia [Unknown]
  - Oropharyngeal pain [Unknown]
  - Dysphagia [Unknown]
  - Dysphonia [Unknown]
  - Speech disorder [Unknown]
  - Chills [Unknown]
  - Full blood count decreased [Unknown]
  - Anaemia [Unknown]
  - Cough [Unknown]

NARRATIVE: CASE EVENT DATE: 20221129
